FAERS Safety Report 6462535-X (Version None)
Quarter: 2009Q4

REPORT INFORMATION
  Report Type: 
  Country: None (occurrence: None)
  Receive Date: 20091130
  Receipt Date: 20091125
  Transmission Date: 20100525
  Serious: No
  Sender: FDA-Public Use
  Company Number: US-B.I. PHARMACEUTICALS,INC./RIDGEFIELD-2009-BP-12823BP

PATIENT
  Sex: Female

DRUGS (5)
  1. SPIRIVA [Suspect]
     Indication: EMPHYSEMA
     Dosage: 18 MCG
     Route: 055
     Dates: start: 20091008
  2. ALBUTEROL SULFATE AUTOHALER [Concomitant]
  3. ZOCOR [Concomitant]
  4. NORVASC [Concomitant]
  5. SOMA COMPOUND [Concomitant]

REACTIONS (1)
  - HEADACHE [None]
